FAERS Safety Report 20103514 (Version 1)
Quarter: 2021Q4

REPORT INFORMATION
  Report Type: Spontaneous
  Country: US (occurrence: US)
  Receive Date: 20211123
  Receipt Date: 20211123
  Transmission Date: 20220304
  Serious: Yes (Other)
  Sender: FDA-Public Use
  Company Number: US-PFIZER INC-202101565261

PATIENT
  Age: 75 Year
  Sex: Male

DRUGS (3)
  1. VYNDAMAX [Suspect]
     Active Substance: TAFAMIDIS
     Dosage: 61 MG, UNK
  2. TORSEMIDE [Concomitant]
     Active Substance: TORSEMIDE
  3. DIGOXIN [Concomitant]
     Active Substance: DIGOXIN

REACTIONS (8)
  - Catheterisation cardiac [Unknown]
  - Fatigue [Unknown]
  - Arthritis [Unknown]
  - Arthralgia [Unknown]
  - Constipation [Unknown]
  - Balance disorder [Unknown]
  - Asthenia [Unknown]
  - Insomnia [Unknown]

NARRATIVE: CASE EVENT DATE: 20160101
